FAERS Safety Report 17406894 (Version 1)
Quarter: 2020Q1

REPORT INFORMATION
  Report Type: Spontaneous
  Country: US (occurrence: US)
  Receive Date: 20200211
  Receipt Date: 20200211
  Transmission Date: 20200409
  Serious: Yes (Other)
  Sender: FDA-Public Use
  Company Number: None

PATIENT
  Age: 29 Year
  Sex: Female
  Weight: 69.75 kg

DRUGS (1)
  1. DEXTROAMPHET SACCHARAT, AMPHET ASPARTATE, DEXTROAMPHET SULFATE AND AMPHET SULFAT [Suspect]
     Active Substance: AMPHETAMINE ASPARTATE\AMPHETAMINE SULFATE\DEXTROAMPHETAMINE SACCHARATE\DEXTROAMPHETAMINE SULFATE
     Indication: ATTENTION DEFICIT/HYPERACTIVITY DISORDER
     Dosage: ?          QUANTITY:1 TABLET(S);?
     Route: 048
     Dates: start: 20200204, end: 20200205

REACTIONS (20)
  - Hypertension [None]
  - Feeling abnormal [None]
  - Pain in jaw [None]
  - Disturbance in attention [None]
  - Hypoaesthesia [None]
  - Heart rate increased [None]
  - Dry mouth [None]
  - Migraine [None]
  - Feeling jittery [None]
  - Chest pain [None]
  - Asthenia [None]
  - Product substitution issue [None]
  - Hangover [None]
  - Nasal congestion [None]
  - Dyspnoea [None]
  - Insomnia [None]
  - Headache [None]
  - Muscle tightness [None]
  - Upper-airway cough syndrome [None]
  - Cough [None]

NARRATIVE: CASE EVENT DATE: 20200204
